FAERS Safety Report 21966670 (Version 2)
Quarter: 2023Q1

REPORT INFORMATION
  Report Type: Spontaneous
  Country: US (occurrence: US)
  Receive Date: 20230208
  Receipt Date: 20230224
  Transmission Date: 20230418
  Serious: No
  Sender: FDA-Public Use
  Company Number: US-SA-SAC20230206000621

PATIENT
  Age: 45 Year
  Sex: Female

DRUGS (1)
  1. DUPIXENT [Suspect]
     Active Substance: DUPILUMAB
     Indication: Asthma
     Dosage: 300MG, QOW
     Route: 058
     Dates: start: 202301

REACTIONS (5)
  - Burning sensation [Unknown]
  - Dry skin [Unknown]
  - Erythema [Unknown]
  - Pruritus [Unknown]
  - Rash papular [Unknown]

NARRATIVE: CASE EVENT DATE: 20230131
